FAERS Safety Report 9778593 (Version 2)
Quarter: 2014Q2

REPORT INFORMATION
  Report Type: Spontaneous
  Country: US (occurrence: None)
  Receive Date: 20131219
  Receipt Date: 20140415
  Transmission Date: 20141212
  Serious: Yes (Other)
  Sender: FDA-Public Use
  Company Number: 2013-US-004309

PATIENT
  Age: 16 Year
  Sex: Male

DRUGS (4)
  1. XYREM [Suspect]
     Indication: NARCOLEPSY
     Route: 048
     Dates: start: 201310
  2. XYREM [Suspect]
     Indication: CATAPLEXY
     Route: 048
     Dates: start: 201310
  3. ALL OTHER THERAPEUTIC PRODUCTS [Concomitant]
  4. RITALIN [Suspect]

REACTIONS (5)
  - Trismus [None]
  - Dystonia [None]
  - Weight decreased [None]
  - Dizziness [None]
  - Decreased appetite [None]
